FAERS Safety Report 7913474-6 (Version None)
Quarter: 2011Q4

REPORT INFORMATION
  Report Type: 
  Country: None (occurrence: None)
  Receive Date: 20111110
  Receipt Date: 20111025
  Transmission Date: 20120403
  Serious: Yes (Life-Threatening)
  Sender: FDA-Public Use
  Company Number: BR-20110094

PATIENT
  Age: 86 Year
  Sex: Female

DRUGS (4)
  1. HEXABRIX [Suspect]
     Indication: ABDOMEN SCAN
     Dosage: INTRAVENOUS (NOT OTHERWISE SPECIFIED)
     Route: 042
     Dates: start: 20111017, end: 20111017
  2. HEXABRIX [Suspect]
     Indication: ARTERIOGRAM CORONARY
     Dosage: INTRAVENOUS (NOT OTHERWISE SPECIFIED)
     Route: 042
     Dates: start: 20111017, end: 20111017
  3. HEXABRIX [Suspect]
     Indication: CATHETERISATION CARDIAC
     Dosage: INTRAVENOUS (NOT OTHERWISE SPECIFIED)
     Route: 042
     Dates: start: 20111017, end: 20111017
  4. HEXABRIX [Suspect]
     Indication: ARTERIOGRAM RENAL
     Dosage: INTRAVENOUS (NOT OTHERWISE SPECIFIED)
     Route: 042
     Dates: start: 20111017, end: 20111017

REACTIONS (5)
  - FLUSHING [None]
  - RESPIRATORY RATE INCREASED [None]
  - PRURITUS [None]
  - DYSPNOEA [None]
  - OEDEMA [None]
